FAERS Safety Report 13790413 (Version 1)
Quarter: 2017Q3

REPORT INFORMATION
  Report Type: Spontaneous
  Country: US (occurrence: US)
  Receive Date: 20170725
  Receipt Date: 20170725
  Transmission Date: 20171127
  Serious: Yes (Other)
  Sender: FDA-Public Use
  Company Number: US-ALEXION-A201707956

PATIENT
  Sex: Female
  Weight: 78.46 kg

DRUGS (1)
  1. SOLIRIS [Suspect]
     Active Substance: ECULIZUMAB
     Indication: PAROXYSMAL NOCTURNAL HAEMOGLOBINURIA
     Dosage: 900 MG, Q2W
     Route: 042
     Dates: start: 2008

REACTIONS (4)
  - Lyme disease [Unknown]
  - Arthropod bite [Unknown]
  - Rash [Recovering/Resolving]
  - Arthralgia [Recovering/Resolving]
